FAERS Safety Report 8289978-6 (Version None)
Quarter: 2012Q2

REPORT INFORMATION
  Report Type: 
  Country: None (occurrence: None)
  Receive Date: 20120417
  Receipt Date: 20060907
  Transmission Date: 20120825
  Serious: Yes (Hospitalization)
  Sender: FDA-Public Use
  Company Number: SE-ELI_LILLY_AND_COMPANY-SE200609003268

PATIENT
  Age: 23 Year
  Sex: Female

DRUGS (3)
  1. NAPROXEN [Concomitant]
     Dosage: 250 MG, X 10 TABLETS
     Dates: start: 20060518
  2. FLUOXETINE HYDROCHLORIDE [Suspect]
     Dosage: 40 TABLETS
     Route: 048
     Dates: start: 20060518
  3. IBUPROFEN [Concomitant]
     Dosage: 400 MG, X 30 TABLETS
     Dates: start: 20060518

REACTIONS (3)
  - HEPATIC FUNCTION ABNORMAL [None]
  - LETHARGY [None]
  - OVERDOSE [None]
